FAERS Safety Report 16568644 (Version 1)
Quarter: 2019Q3

REPORT INFORMATION
  Report Type: Spontaneous
  Country: JP (occurrence: JP)
  Receive Date: 20190713
  Receipt Date: 20190713
  Transmission Date: 20191004
  Serious: Yes (Hospitalization)
  Sender: FDA-Public Use
  Company Number: JP-AMGEN-JPNSP2019112498

PATIENT
  Sex: Female

DRUGS (1)
  1. VECTIBIX [Suspect]
     Active Substance: PANITUMUMAB
     Indication: COLON CANCER
     Dosage: 4.8 MILLIGRAM/KILOGRAM, Q2WK
     Route: 041
     Dates: start: 201906

REACTIONS (1)
  - Lung disorder [Recovered/Resolved]

NARRATIVE: CASE EVENT DATE: 201906
